FAERS Safety Report 5588336-2 (Version None)
Quarter: 2008Q1

REPORT INFORMATION
  Report Type: 
  Country: None (occurrence: None)
  Receive Date: 20080111
  Receipt Date: 20070914
  Transmission Date: 20080703
  Serious: No
  Sender: FDA-Public Use
  Company Number: A0653691A

PATIENT
  Age: 63 Year
  Sex: Female
  Weight: 66.4 kg

DRUGS (10)
  1. TYKERB [Suspect]
     Indication: BREAST CANCER
     Dosage: 5TAB PER DAY
     Route: 048
     Dates: start: 20070401, end: 20070602
  2. XELODA [Concomitant]
     Dosage: 2500MG PER DAY
     Route: 048
     Dates: start: 20070401, end: 20070602
  3. PRILOSEC [Concomitant]
     Dosage: 20U TWICE PER DAY
     Route: 048
     Dates: start: 20070601
  4. ZYRTEC [Concomitant]
     Dosage: 10U PER DAY
     Route: 048
     Dates: start: 20040801
  5. SUDAFED 12 HOUR [Concomitant]
     Dosage: 60MG PER DAY
     Route: 048
     Dates: start: 20040801
  6. FLOVENT [Concomitant]
     Dosage: 2PUFF TWICE PER DAY
     Route: 055
     Dates: start: 20040801
  7. PROVENTIL [Concomitant]
     Route: 055
     Dates: start: 20040801
  8. OSCAL D [Concomitant]
     Dosage: 2U PER DAY
     Route: 048
     Dates: start: 20050701
  9. B6 [Concomitant]
     Dosage: 100U PER DAY
     Route: 048
     Dates: start: 20060701
  10. ADVIL LIQUI-GELS [Concomitant]
     Route: 048
     Dates: start: 20070601

REACTIONS (5)
  - AGITATION [None]
  - CONSTIPATION [None]
  - DYSPNOEA [None]
  - NAUSEA [None]
  - PANIC ATTACK [None]
